FAERS Safety Report 4382717-0 (Version None)
Quarter: 2004Q2

REPORT INFORMATION
  Report Type: 
  Country: None (occurrence: None)
  Receive Date: 20040614
  Receipt Date: 20040421
  Transmission Date: 20050107
  Serious: Yes (Hospitalization)
  Sender: FDA-Public Use
  Company Number: S04-USA-02274-01

PATIENT
  Age: 20 Year
  Sex: Female

DRUGS (4)
  1. LEXAPRO [Suspect]
     Dosage: SEE IMAGE
     Route: 048
  2. AMBIEN [Concomitant]
  3. RITALIN [Concomitant]
  4. ALBUTEROL [Concomitant]

REACTIONS (4)
  - INTENTIONAL OVERDOSE [None]
  - SOMNOLENCE [None]
  - SUICIDAL IDEATION [None]
  - SUICIDE ATTEMPT [None]
